FAERS Safety Report 5012656-3 (Version None)
Quarter: 2006Q2

REPORT INFORMATION
  Report Type: 
  Country: None (occurrence: None)
  Receive Date: 20060411
  Receipt Date: 20060202
  Transmission Date: 20061013
  Serious: Yes (Other)
  Sender: FDA-Public Use
  Company Number: 435087

PATIENT
  Sex: 0

DRUGS (2)
  1. FUZEON [Suspect]
  2. APTIVUS (TIPRANAVIR) [Concomitant]

REACTIONS (1)
  - DRUG INEFFECTIVE [None]
